FAERS Safety Report 18800573 (Version 1)
Quarter: 2021Q1

REPORT INFORMATION
  Report Type: Spontaneous
  Country: US (occurrence: US)
  Receive Date: 20210128
  Receipt Date: 20210128
  Transmission Date: 20210419
  Serious: No
  Sender: FDA-Public Use
  Company Number: US-ABBVIE-20K-163-3286636-00

PATIENT

DRUGS (1)
  1. LUPRON DEPOT [Suspect]
     Active Substance: LEUPROLIDE ACETATE
     Indication: PRODUCT USED FOR UNKNOWN INDICATION
     Route: 065

REACTIONS (9)
  - Constipation [Unknown]
  - Asthenia [Unknown]
  - Blood pressure increased [Unknown]
  - Nausea [Unknown]
  - Arthralgia [Unknown]
  - Product use complaint [Unknown]
  - Vertigo [Unknown]
  - Hot flush [Unknown]
  - Myalgia [Unknown]
